FAERS Safety Report 7421334-2 (Version None)
Quarter: 2011Q2

REPORT INFORMATION
  Report Type: 
  Country: None (occurrence: None)
  Receive Date: 20110418
  Receipt Date: 20110408
  Transmission Date: 20111010
  Serious: Yes (Other)
  Sender: FDA-Public Use
  Company Number: BE-ASTRAZENECA-2011SE20321

PATIENT
  Age: 19976 Day
  Sex: Male

DRUGS (6)
  1. NOBITEN [Concomitant]
     Dosage: 1/4
  2. HERBAL SUBSTANCE [Concomitant]
     Indication: URINARY TRACT DISORDER
  3. PLAVIX [Concomitant]
  4. SIMVASTATIN [Concomitant]
  5. ZESTRIL [Suspect]
     Indication: ANGINA PECTORIS
     Route: 048
     Dates: start: 20101201
  6. ASAFLOW [Concomitant]

REACTIONS (2)
  - AMNESIA [None]
  - EPILEPSY [None]
